FAERS Safety Report 6837398-0 (Version None)
Quarter: 2010Q3

REPORT INFORMATION
  Report Type: 
  Country: None (occurrence: None)
  Receive Date: 20100707
  Receipt Date: 20100624
  Transmission Date: 20110219
  Serious: Yes (Death)
  Sender: FDA-Public Use
  Company Number: WAES 1001USA00402

PATIENT
  Age: 68 Year
  Sex: Male

DRUGS (6)
  1. TAB SITAGLIPTIN PHOSPHATE [Suspect]
     Indication: TYPE 2 DIABETES MELLITUS
     Dosage: 50 MG/DAILY/PO
     Route: 048
     Dates: start: 20061226
  2. TAB SITSGLIPTIN PHOSPHATE [Suspect]
     Indication: TYPE 2 DIABETES MELLITUS
     Dosage: 50 MG/DAILY/PO
     Route: 048
     Dates: start: 20090912, end: 20091225
  3. HALCION [Concomitant]
  4. LANTUS [Concomitant]
  5. PEPCID [Concomitant]
  6. RELIFEN [Concomitant]

REACTIONS (3)
  - FALL [None]
  - HYPOGLYCAEMIA [None]
  - MYOCARDIAL INFARCTION [None]
